FAERS Safety Report 9412352 (Version 2)
Quarter: 2013Q3

REPORT INFORMATION
  Report Type: Spontaneous
  Country: US (occurrence: US)
  Receive Date: 20130722
  Receipt Date: 20130813
  Transmission Date: 20140515
  Serious: Yes (Death, Hospitalization)
  Sender: FDA-Public Use
  Company Number: US-SANOFI-AVENTIS-2013SA072482

PATIENT
  Age: 65 Year
  Sex: Male

DRUGS (8)
  1. ARAVA [Suspect]
     Indication: RHEUMATOID ARTHRITIS
     Route: 048
     Dates: start: 20130409, end: 20130516
  2. ENBREL [Suspect]
     Route: 065
     Dates: start: 20130409
  3. ALL OTHER THERAPEUTIC PRODUCTS [Suspect]
     Indication: RHEUMATOID ARTHRITIS
     Route: 048
     Dates: start: 20130501, end: 20130520
  4. PREDNISONE [Concomitant]
     Indication: RHEUMATOID ARTHRITIS
     Route: 065
     Dates: start: 201212
  5. PLAQUENIL [Concomitant]
     Route: 065
  6. FORTEO [Concomitant]
     Route: 065
  7. METHOTREXATE [Concomitant]
     Route: 065
  8. ORENCIA [Concomitant]
     Route: 065

REACTIONS (7)
  - Respiratory failure [Fatal]
  - Septic shock [Fatal]
  - Stevens-Johnson syndrome [Fatal]
  - Hypersensitivity [Fatal]
  - Pneumonia [Fatal]
  - Platelet count decreased [Unknown]
  - Rash [Not Recovered/Not Resolved]
